FAERS Safety Report 18601703 (Version 1)
Quarter: 2020Q4

REPORT INFORMATION
  Report Type: Spontaneous
  Country: FR (occurrence: FR)
  Receive Date: 20201210
  Receipt Date: 20201210
  Transmission Date: 20210114
  Serious: Yes (Hospitalization)
  Sender: FDA-Public Use
  Company Number: NVSC2020FR325434

PATIENT
  Age: 9 Month
  Sex: Male

DRUGS (1)
  1. MEKINIST [Suspect]
     Active Substance: TRAMETINIB DIMETHYL SULFOXIDE
     Indication: ASTROCYTOMA
     Dosage: 0.2 MG, QD
     Route: 048
     Dates: start: 20200828, end: 20201019

REACTIONS (3)
  - Renal failure [Recovered/Resolved]
  - Hypertension [Not Recovered/Not Resolved]
  - Hypernatraemia [Recovered/Resolved]

NARRATIVE: CASE EVENT DATE: 20201019
